FAERS Safety Report 12872712 (Version 1)
Quarter: 2016Q4

REPORT INFORMATION
  Report Type: Spontaneous
  Country: US (occurrence: US)
  Receive Date: 20161021
  Receipt Date: 20161021
  Transmission Date: 20170207
  Serious: No
  Sender: FDA-Public Use
  Company Number: US-BAYER-2016-203373

PATIENT
  Age: 100 Year
  Sex: Female
  Weight: 58.96 kg

DRUGS (1)
  1. CLARITIN [Suspect]
     Active Substance: LORATADINE
     Indication: ECZEMA
     Dosage: UNK
     Route: 048

REACTIONS (1)
  - Circumstance or information capable of leading to medication error [Unknown]
